FAERS Safety Report 13258464 (Version 1)
Quarter: 2017Q1

REPORT INFORMATION
  Report Type: Spontaneous
  Country: FI (occurrence: FI)
  Receive Date: 20170222
  Receipt Date: 20170222
  Transmission Date: 20170428
  Serious: Yes (Hospitalization)
  Sender: FDA-Public Use
  Company Number: FI-ASTRAZENECA-2017SE17342

PATIENT
  Sex: Male

DRUGS (6)
  1. ORLOC [Concomitant]
     Active Substance: BISOPROLOL FUMARATE
  2. KALEORID [Concomitant]
     Active Substance: POTASSIUM CHLORIDE
  3. JANUVIA [Concomitant]
     Active Substance: SITAGLIPTIN PHOSPHATE
  4. FORXIGA [Suspect]
     Active Substance: DAPAGLIFLOZIN
     Route: 048
  5. BETOLVEX [Concomitant]
     Active Substance: CYANOCOBALAMIN
  6. METFORMIN [Concomitant]
     Active Substance: METFORMIN HYDROCHLORIDE

REACTIONS (4)
  - Vomiting [Unknown]
  - Nausea [Unknown]
  - Blood glucose increased [Unknown]
  - Acidosis [Unknown]
